FAERS Safety Report 19295169 (Version 1)
Quarter: 2021Q2

REPORT INFORMATION
  Report Type: Spontaneous
  Country: US (occurrence: US)
  Receive Date: 20210524
  Receipt Date: 20210524
  Transmission Date: 20210717
  Serious: Yes (Other)
  Sender: FDA-Public Use
  Company Number: US-MYLANLABS-2021M1029931

PATIENT
  Age: 3 Year
  Sex: Female

DRUGS (5)
  1. TOPOTECAN [Suspect]
     Active Substance: TOPOTECAN HYDROCHLORIDE
     Indication: ATYPICAL TERATOID/RHABDOID TUMOUR OF CNS
     Dosage: VIA AN OMMAYA RESERVOIR
     Route: 037
  2. ETOPOSIDE. [Suspect]
     Active Substance: ETOPOSIDE
     Indication: ATYPICAL TERATOID/RHABDOID TUMOUR OF CNS
     Dosage: VIA AN OMMAYA RESERVOIR
     Route: 037
  3. THIOTEPA. [Suspect]
     Active Substance: THIOTEPA
     Indication: ATYPICAL TERATOID/RHABDOID TUMOUR OF CNS
     Dosage: VIA AN OMMAYA RESERVOIR
     Route: 037
  4. ALISERTIB [Concomitant]
     Active Substance: ALISERTIB
     Indication: ATYPICAL TERATOID/RHABDOID TUMOUR OF CNS
     Dosage: INITIAL DOSE NOT STATED
     Route: 065
  5. ALISERTIB [Concomitant]
     Active Substance: ALISERTIB
     Indication: MYELODYSPLASTIC SYNDROME
     Dosage: 40 MILLIGRAM/SQ. METER, QD FOR 7 DAYS EVERY 21 DAYS (3 CYCLES)
     Route: 065

REACTIONS (1)
  - Myelodysplastic syndrome [Recovered/Resolved]
